FAERS Safety Report 10548049 (Version 1)
Quarter: 2014Q4

REPORT INFORMATION
  Report Type: Spontaneous
  Country: US (occurrence: None)
  Receive Date: 20141027
  Receipt Date: 20141027
  Transmission Date: 20150529
  Serious: No
  Sender: FDA-Public Use
  Company Number: None

PATIENT
  Age: 60 Year
  Sex: Male
  Weight: 86.18 kg

DRUGS (1)
  1. DELSYM [Suspect]
     Active Substance: DEXTROMETHORPHAN
     Indication: BRONCHITIS
     Route: 048
     Dates: start: 20141022, end: 20141026

REACTIONS (2)
  - Product packaging issue [None]
  - Accidental overdose [None]

NARRATIVE: CASE EVENT DATE: 20141026
